FAERS Safety Report 21515244 (Version 4)
Quarter: 2022Q4

REPORT INFORMATION
  Report Type: Spontaneous
  Country: US (occurrence: US)
  Receive Date: 20221027
  Receipt Date: 20221128
  Transmission Date: 20230113
  Serious: No
  Sender: FDA-Public Use
  Company Number: US-PFIZER INC-PV202200090064

PATIENT
  Age: 67 Year
  Sex: Female

DRUGS (1)
  1. IBRANCE [Suspect]
     Active Substance: PALBOCICLIB
     Dosage: 125 MG

REACTIONS (6)
  - Faeces soft [Unknown]
  - Fatigue [Unknown]
  - Pollakiuria [Unknown]
  - Sleep disorder [Unknown]
  - Rash [Unknown]
  - Skin fissures [Unknown]

NARRATIVE: CASE EVENT DATE: 20221001
